FAERS Safety Report 21148486 (Version 1)
Quarter: 2022Q3

REPORT INFORMATION
  Report Type: Spontaneous
  Country: US (occurrence: US)
  Receive Date: 20220729
  Receipt Date: 20220729
  Transmission Date: 20221027
  Serious: No
  Sender: FDA-Public Use
  Company Number: US-BRISTOL-MYERS SQUIBB COMPANY-2022-072967

PATIENT
  Age: 53 Year
  Sex: Female

DRUGS (2)
  1. REVLIMID [Suspect]
     Active Substance: LENALIDOMIDE
     Indication: Plasma cell myeloma
     Route: 048
     Dates: start: 20220120
  2. REVLIMID [Suspect]
     Active Substance: LENALIDOMIDE
     Indication: Neoplasm malignant

REACTIONS (5)
  - Blister [Unknown]
  - Joint swelling [Unknown]
  - Insomnia [Unknown]
  - Light chain analysis abnormal [Unknown]
  - Immunoglobulins increased [Unknown]

NARRATIVE: CASE EVENT DATE: 20220301
